FAERS Safety Report 24812411 (Version 3)
Quarter: 2025Q1

REPORT INFORMATION
  Report Type: Spontaneous
  Country: US (occurrence: US)
  Receive Date: 20250106
  Receipt Date: 20250223
  Transmission Date: 20250409
  Serious: No
  Sender: PIRAMAL
  Company Number: US-PCCINC-2024-PPL-000969

PATIENT

DRUGS (1)
  1. GABLOFEN [Suspect]
     Active Substance: BACLOFEN
     Indication: Muscle spasticity
     Route: 037

REACTIONS (2)
  - Catheter site scar [Recovered/Resolved]
  - Drug ineffective [Recovered/Resolved]

NARRATIVE: CASE EVENT DATE: 20240917
